FAERS Safety Report 4582141-1 (Version None)
Quarter: 2005Q1

REPORT INFORMATION
  Report Type: 
  Country: None (occurrence: None)
  Receive Date: 20050119
  Receipt Date: 20040129
  Transmission Date: 20050727
  Serious: Yes (Hospitalization)
  Sender: FDA-Public Use
  Company Number: A03200400315

PATIENT
  Age: 85 Year
  Sex: Female
  Weight: 55.3388 kg

DRUGS (6)
  1. PLAVIX [Suspect]
     Indication: ARTERIAL OCCLUSIVE DISEASE
     Dosage: 75 MG QD - ORAL
     Route: 048
     Dates: start: 20010101
  2. PLAVIX [Suspect]
     Indication: DIZZINESS
     Dosage: 75 MG QD - ORAL
     Route: 048
     Dates: start: 20010101
  3. ACETYLSALICYLIC ACID [Concomitant]
  4. TRAMADOL HYDROCHLORIDE [Concomitant]
  5. LOSARTAN POTASSIUM [Concomitant]
  6. LOSARTAN AND HYDROCHLOROTHIAZIDE [Concomitant]

REACTIONS (1)
  - MYOCARDIAL INFARCTION [None]
